FAERS Safety Report 7432929-4 (Version None)
Quarter: 2011Q2

REPORT INFORMATION
  Report Type: 
  Country: None (occurrence: None)
  Receive Date: 20110422
  Receipt Date: 20110419
  Transmission Date: 20111010
  Serious: Yes (Other)
  Sender: FDA-Public Use
  Company Number: US-PFIZER INC-2011086008

PATIENT
  Sex: Female
  Weight: 70.29 kg

DRUGS (2)
  1. EFFEXOR XR [Suspect]
     Indication: ANXIETY
     Dosage: 75 MG, 1X/DAY
     Route: 048
     Dates: start: 20101001, end: 20110416
  2. AMBIEN [Concomitant]
     Indication: SLEEP DISORDER
     Dosage: 10 MG, EVERY COUPLE OF DAYS
     Route: 048

REACTIONS (6)
  - PARAESTHESIA [None]
  - DRUG DEPENDENCE [None]
  - MALAISE [None]
  - WEIGHT INCREASED [None]
  - DIZZINESS [None]
  - FEELING ABNORMAL [None]
